FAERS Safety Report 8874665 (Version 1)
Quarter: 2012Q4

REPORT INFORMATION
  Report Type: 
  Country: DE (occurrence: DE)
  Receive Date: 20121023
  Receipt Date: 20121023
  Transmission Date: 20130627
  Serious: Yes (Other)
  Sender: FDA-Public Use
  Company Number: DE-UCBSA-068396

PATIENT
  Sex: Female

DRUGS (14)
  1. LACOSAMIDE [Suspect]
  2. LACOSAMIDE [Suspect]
     Dosage: 200MG-100MG-200MG
  3. LEVETIRACETAM [Suspect]
  4. PHENYTOIN [Suspect]
     Indication: CONVULSION
     Dosage: 175
  5. PHENYTOIN [Suspect]
     Indication: CONVULSION
     Dosage: DOSE : 175
     Dates: start: 2010
  6. TIAGABINE [Suspect]
  7. OXCARBAZEPINE [Suspect]
  8. VALPROIC ACID [Suspect]
  9. CLOBAZAM [Suspect]
  10. CLOBAZAM [Suspect]
     Dosage: DOSE:30
     Dates: start: 2010
  11. CLOBAZAM [Suspect]
     Dosage: 5-0-10 MG
  12. ZONISAMIDE [Concomitant]
  13. ZONISAMIDE [Concomitant]
     Dosage: DOSE:400
     Dates: start: 2010
  14. STIRIPENTOL [Concomitant]
     Dosage: 1000-0-1000 MG
     Dates: start: 2001, end: 2010

REACTIONS (10)
  - Seizure cluster [Unknown]
  - Systemic lupus erythematosus [Unknown]
  - Dependence [Unknown]
  - Overdose [Unknown]
  - Toxicity to various agents [Unknown]
  - Somnolence [Unknown]
  - Gait disturbance [Unknown]
  - Dizziness [Unknown]
  - Nystagmus [Unknown]
  - Alopecia [Unknown]
